FAERS Safety Report 7528073-8 (Version None)
Quarter: 2011Q2

REPORT INFORMATION
  Report Type: 
  Country: None (occurrence: None)
  Receive Date: 20110607
  Receipt Date: 20110104
  Transmission Date: 20111010
  Serious: Yes (Hospitalization)
  Sender: FDA-Public Use
  Company Number: US-BAYER-201019466NA

PATIENT
  Age: 21 Year
  Sex: Female
  Weight: 68.027 kg

DRUGS (18)
  1. YAZ [Suspect]
     Indication: ACNE
     Dosage: UNK UNK, QD
     Route: 048
     Dates: start: 20060101, end: 20080101
  2. ANTI-ASTHMATICS [Concomitant]
     Indication: ASTHMA
  3. TORADOL [Concomitant]
  4. YAZ [Suspect]
     Indication: CONTRACEPTION
  5. ANTIMIGRAINE PREPARATIONS [Concomitant]
     Indication: MIGRAINE
  6. YASMIN [Suspect]
     Indication: ACNE
  7. ATENOLOL [Concomitant]
     Indication: HYPERTENSION
  8. ANTIHEMORRHOIDALS FOR TOPICAL USE [Concomitant]
     Dosage: 25 MG, PRN
     Route: 054
  9. NAPROXEN [Concomitant]
     Indication: PAIN
     Dosage: UNK
     Dates: start: 20070901
  10. SUDAFED 12 HOUR [Concomitant]
  11. YASMIN [Suspect]
     Indication: CONTRACEPTION
     Dosage: UNK
     Route: 048
     Dates: start: 20030101, end: 20030101
  12. HYDROCODONE BITARTRATE [Concomitant]
     Indication: PAIN
     Dosage: UNK
     Dates: start: 20071101, end: 20090301
  13. FLAGYL [Concomitant]
  14. YASMIN [Suspect]
     Indication: PREMENSTRUAL SYNDROME
  15. YAZ [Suspect]
     Indication: PREMENSTRUAL SYNDROME
  16. HYDROCODONE BITARTRATE AND ACETAMINOPHEN [Concomitant]
     Indication: PRODUCT USED FOR UNKNOWN INDICATION
     Dosage: UNK UNK, QID
  17. FLEXERIL [Concomitant]
     Indication: MUSCLE RELAXANT THERAPY
  18. DICYCLOMINE [Concomitant]

REACTIONS (9)
  - CHOLECYSTITIS CHRONIC [None]
  - CHOLELITHIASIS [None]
  - ABDOMINAL PAIN UPPER [None]
  - FLANK PAIN [None]
  - CHOLECYSTITIS ACUTE [None]
  - ABDOMINAL PAIN [None]
  - VOMITING [None]
  - NAUSEA [None]
  - DIARRHOEA [None]
